FAERS Safety Report 24726225 (Version 1)
Quarter: 2024Q4

REPORT INFORMATION
  Report Type: Spontaneous
  Country: CH (occurrence: CH)
  Receive Date: 20241212
  Receipt Date: 20241212
  Transmission Date: 20250115
  Serious: Yes (Hospitalization, Other)
  Sender: NOVITIUM PHARMA
  Company Number: CH-NOVITIUMPHARMA-2024CHNVP02801

PATIENT
  Age: 24 Year
  Sex: Male

DRUGS (8)
  1. HYDROXYCHLOROQUINE SULFATE [Suspect]
     Active Substance: HYDROXYCHLOROQUINE SULFATE
     Indication: Systemic lupus erythematosus
  2. AZATHIOPRINE [Concomitant]
     Active Substance: AZATHIOPRINE
     Indication: Systemic lupus erythematosus
  3. ANAKINRA [Concomitant]
     Active Substance: ANAKINRA
     Indication: Product used for unknown indication
  4. Immune-globulin [Concomitant]
     Indication: Product used for unknown indication
     Route: 042
  5. VORICONAZOLE [Concomitant]
     Active Substance: VORICONAZOLE
     Indication: Bronchopulmonary aspergillosis
  6. VORICONAZOLE [Concomitant]
     Active Substance: VORICONAZOLE
     Indication: Cerebral aspergillosis
  7. RUXOLITINIB [Concomitant]
     Active Substance: RUXOLITINIB
     Indication: Systemic lupus erythematosus
  8. RUXOLITINIB [Concomitant]
     Active Substance: RUXOLITINIB
     Indication: Haemophagocytic lymphohistiocytosis

REACTIONS (5)
  - Haemophagocytic lymphohistiocytosis [Recovered/Resolved]
  - Pancytopenia [Unknown]
  - Human herpesvirus 8 infection [Unknown]
  - Lymphopenia [Unknown]
  - Pyrexia [Unknown]
